FAERS Safety Report 5342662-0 (Version None)
Quarter: 2007Q2

REPORT INFORMATION
  Report Type: 
  Country: None (occurrence: None)
  Receive Date: 20070601
  Receipt Date: 20070521
  Transmission Date: 20071010
  Serious: Yes (Other)
  Sender: FDA-Public Use
  Company Number: US-PFIZER INC-2007041182

PATIENT
  Sex: Male
  Weight: 12.7 kg

DRUGS (1)
  1. CELEBREX [Suspect]
     Indication: JOINT SWELLING

REACTIONS (3)
  - CARDIAC FAILURE CONGESTIVE [None]
  - CARDIOVASCULAR DISORDER [None]
  - OEDEMA PERIPHERAL [None]
